FAERS Safety Report 7313876-5 (Version None)
Quarter: 2011Q1

REPORT INFORMATION
  Report Type: 
  Country: None (occurrence: None)
  Receive Date: 20110217
  Receipt Date: 20110217
  Transmission Date: 20110831
  Serious: Yes (Disabling)
  Sender: FDA-Public Use
  Company Number: None

PATIENT
  Sex: Female
  Weight: 77.3 kg

DRUGS (2)
  1. CYMBALTA [Suspect]
     Indication: FIBROMYALGIA
     Dosage: 60 MG 1 A DAY BY MOUTH
     Dates: start: 20070101, end: 20110101
  2. CYMBALTA [Suspect]
     Indication: DEPRESSION
     Dosage: 60 MG 1 A DAY BY MOUTH
     Dates: start: 20070101, end: 20110101

REACTIONS (8)
  - CONFUSIONAL STATE [None]
  - MOTION SICKNESS [None]
  - PARAESTHESIA [None]
  - PAIN [None]
  - AGITATION [None]
  - DECREASED ACTIVITY [None]
  - WITHDRAWAL SYNDROME [None]
  - VOMITING [None]
